FAERS Safety Report 5713190-5 (Version None)
Quarter: 2008Q2

REPORT INFORMATION
  Report Type: 
  Country: None (occurrence: None)
  Receive Date: 20080422
  Receipt Date: 20080418
  Transmission Date: 20081010
  Serious: Yes (Death)
  Sender: FDA-Public Use
  Company Number: PHNU2008DE01129

PATIENT
  Age: 44 Year
  Sex: Male

DRUGS (3)
  1. CLOZAPINE [Suspect]
     Indication: SCHIZOPHRENIA
     Dosage: 400 MG/DAY
     Route: 048
     Dates: start: 20020601
  2. CLOZAPINE [Suspect]
     Dosage: 200 MG, TID
     Route: 048
     Dates: start: 20030101
  3. CLOZAPINE [Suspect]
     Dosage: 200-100-200 MG/DAY
     Route: 048
     Dates: start: 20070201

REACTIONS (6)
  - ARRHYTHMIA [None]
  - CARDIAC FAILURE ACUTE [None]
  - COMPLETED SUICIDE [None]
  - HYPERVENTILATION [None]
  - INFARCTION [None]
  - RESTLESSNESS [None]
